FAERS Safety Report 24055603 (Version 1)
Quarter: 2024Q3

REPORT INFORMATION
  Report Type: Spontaneous
  Country: US (occurrence: None)
  Receive Date: 20240703
  Receipt Date: 20240703
  Transmission Date: 20241016
  Serious: Yes (Hospitalization)
  Sender: Public
  Company Number: None

PATIENT
  Age: 7 Year
  Sex: Female
  Weight: 30.7 kg

DRUGS (1)
  1. SKYTROFA [Suspect]
     Active Substance: LONAPEGSOMATROPIN-TCGD
     Indication: Growth hormone deficiency
     Dosage: OTHER FREQUENCY : WEEKLY;?
     Route: 058
     Dates: start: 20170101, end: 20240628

REACTIONS (3)
  - Eye pain [None]
  - Ocular discomfort [None]
  - Idiopathic intracranial hypertension [None]

NARRATIVE: CASE EVENT DATE: 20240628
